FAERS Safety Report 9223133 (Version 1)
Quarter: 2013Q1

REPORT INFORMATION
  Report Type: Spontaneous
  Country: US (occurrence: None)
  Receive Date: 20120914
  Receipt Date: 20120914
  Transmission Date: 20140127
  Serious: Yes (Other)
  Sender: FDA-Public Use
  Company Number: JPI-P-016878

PATIENT
  Age: 63 Year
  Sex: Female
  Weight: 87.09 kg

DRUGS (5)
  1. XYREM [Suspect]
     Indication: NARCOLEPSY
     Route: 048
     Dates: start: 20110613, end: 2011
  2. XYREM [Suspect]
     Indication: SOMNOLENCE
     Route: 048
     Dates: start: 20110613, end: 2011
  3. XYREM [Suspect]
     Indication: FIBROMYALGIA
     Route: 048
     Dates: start: 20110613, end: 2011
  4. XYREM [Suspect]
     Route: 048
     Dates: start: 20110613, end: 2011
  5. DIOVAN [Suspect]
     Indication: HYPERTENSION
     Dates: end: 20110816

REACTIONS (11)
  - Blood pressure increased [None]
  - Weight decreased [None]
  - Dizziness [None]
  - Hypotension [None]
  - Bronchitis [None]
  - Condition aggravated [None]
  - Respiratory tract congestion [None]
  - Cough [None]
  - Wheezing [None]
  - Sinusitis [None]
  - Sinus congestion [None]
